FAERS Safety Report 10640773 (Version 1)
Quarter: 2014Q4

REPORT INFORMATION
  Report Type: Spontaneous
  Country: US (occurrence: None)
  Receive Date: 20141205
  Receipt Date: 20141205
  Transmission Date: 20150529
  Serious: Yes (Other)
  Sender: FDA-Public Use
  Company Number: 2014-US-015753

PATIENT
  Age: 71 Year
  Sex: Female
  Weight: 111.1 kg

DRUGS (1)
  1. XYREM [Suspect]
     Active Substance: SODIUM OXYBATE
     Indication: SOMNOLENCE
     Route: 048
     Dates: start: 201312

REACTIONS (12)
  - Renal failure [None]
  - Localised infection [None]
  - Depression [None]
  - Limb injury [None]
  - Sleep disorder [None]
  - Gait disturbance [None]
  - Balance disorder [None]
  - Malaise [None]
  - Oedema [None]
  - Off label use [None]
  - Peripheral swelling [None]
  - Gangrene [None]

NARRATIVE: CASE EVENT DATE: 201409
